FAERS Safety Report 15821225 (Version 1)
Quarter: 2019Q1

REPORT INFORMATION
  Report Type: Spontaneous
  Country: US (occurrence: US)
  Receive Date: 20190112
  Receipt Date: 20190112
  Transmission Date: 20190417
  Serious: Yes (Hospitalization)
  Sender: FDA-Public Use
  Company Number: None

PATIENT
  Age: 33 Year
  Sex: Male
  Weight: 69.75 kg

DRUGS (1)
  1. STOOL SOFTENER. DUCOSATE SODIUM 100MG [Suspect]
     Active Substance: DOCUSATE SODIUM
     Indication: HAEMORRHOIDS
     Dosage: ?          QUANTITY:100 CAPSULE(S);?
     Route: 048
     Dates: start: 20181218, end: 20181219

REACTIONS (2)
  - Expired product administered [None]
  - Abdominal pain [None]

NARRATIVE: CASE EVENT DATE: 20181212
